FAERS Safety Report 8403211 (Version 4)
Quarter: 2017Q1

REPORT INFORMATION
  Report Type: Report from Study
  Country: DE (occurrence: DE)
  Receive Date: 20120213
  Receipt Date: 20170330
  Transmission Date: 20170429
  Serious: Yes (Other)
  Sender: FDA-Public Use
  Company Number: DE-ROCHE-1038805

PATIENT
  Age: 79 Year
  Sex: Female

DRUGS (6)
  1. BEVACIZUMAB [Suspect]
     Active Substance: BEVACIZUMAB
     Indication: RETINAL HAEMORRHAGE
     Dosage: 1.25 MG DISSOLVED IN 0.05 ML OF BSS
     Route: 050
  2. SULFUR HEXAFLUORIDE [Suspect]
     Active Substance: SULFUR HEXAFLUORIDE
     Indication: RETINAL HAEMORRHAGE
     Dosage: STRENGTH: 20 %
     Route: 065
  3. SULFUR HEXAFLUORIDE [Suspect]
     Active Substance: SULFUR HEXAFLUORIDE
     Indication: AGE-RELATED MACULAR DEGENERATION
  4. ALTEPLASE [Suspect]
     Active Substance: ALTEPLASE
     Indication: AGE-RELATED MACULAR DEGENERATION
  5. ALTEPLASE [Suspect]
     Active Substance: ALTEPLASE
     Indication: RETINAL HAEMORRHAGE
     Dosage: 10 - 20 MCG DISSOLVED IN 0.05 - 0.1 ML OF BSS
     Route: 065
  6. BEVACIZUMAB [Suspect]
     Active Substance: BEVACIZUMAB
     Indication: AGE-RELATED MACULAR DEGENERATION

REACTIONS (1)
  - Macular hole [Unknown]
